FAERS Safety Report 12316624 (Version 1)
Quarter: 2016Q2

REPORT INFORMATION
  Report Type: Spontaneous
  Country: US (occurrence: US)
  Receive Date: 20160429
  Receipt Date: 20160429
  Transmission Date: 20160815
  Serious: Yes (Other)
  Sender: FDA-Public Use
  Company Number: US-HOSPIRA-3262781

PATIENT
  Age: 16 Year
  Sex: Male

DRUGS (3)
  1. VINCRISTINE [Concomitant]
     Active Substance: VINCRISTINE
     Indication: ACUTE LYMPHOCYTIC LEUKAEMIA
     Dosage: 1 TIME
     Route: 042
     Dates: start: 20130320, end: 20130320
  2. METHOTREXATE [Suspect]
     Active Substance: METHOTREXATE
     Indication: ACUTE LYMPHOCYTIC LEUKAEMIA
     Dosage: X1
     Route: 042
     Dates: start: 20130320, end: 20130320
  3. METHOTREXATE [Suspect]
     Active Substance: METHOTREXATE
     Indication: ACUTE LYMPHOCYTIC LEUKAEMIA
     Dosage: X1
     Route: 042
     Dates: start: 20130320, end: 20130320

REACTIONS (7)
  - Pain [Recovered/Resolved]
  - Skin ulcer [Recovered/Resolved]
  - Erythema [Recovered/Resolved]
  - Administration site discharge [Recovered/Resolved]
  - Hyperaesthesia [Unknown]
  - Thermal burn [Recovered/Resolved]
  - Wound decomposition [Unknown]

NARRATIVE: CASE EVENT DATE: 20130324
